FAERS Safety Report 8590052-X (Version None)
Quarter: 2012Q3

REPORT INFORMATION
  Report Type: 
  Country: None (occurrence: None)
  Receive Date: 20120813
  Receipt Date: 20120803
  Transmission Date: 20120928
  Serious: Yes (Other)
  Sender: FDA-Public Use
  Company Number: US-BAYER-2012-067635

PATIENT
  Age: 34 Year
  Sex: Female
  Weight: 94.331 kg

DRUGS (2)
  1. MIRENA [Suspect]
     Indication: MENORRHAGIA
     Dosage: 20 MCG/24HR, CONT
     Route: 015
     Dates: start: 20120507, end: 20120622
  2. MIRENA [Suspect]
     Indication: CONTRACEPTION

REACTIONS (4)
  - DEVICE DISLOCATION [None]
  - UTERINE PERFORATION [None]
  - ABDOMINAL PAIN [None]
  - MUSCLE SPASMS [None]
